FAERS Safety Report 8573518-8 (Version None)
Quarter: 2012Q2

REPORT INFORMATION
  Report Type: 
  Country: None (occurrence: None)
  Receive Date: 20120423
  Receipt Date: 20091026
  Transmission Date: 20120825
  Serious: Yes (Other)
  Sender: FDA-Public Use
  Company Number: PHEH2009US10923

PATIENT
  Age: 46 Year
  Sex: Female

DRUGS (2)
  1. EXJADE [Suspect]
     Indication: SICKLE CELL ANAEMIA
     Dosage: 750 MG/DAY, ORAL
     Route: 048
     Dates: start: 20080108, end: 20090813
  2. COUMADIN [Concomitant]

REACTIONS (1)
  - HEPATIC ENZYME INCREASED [None]
